FAERS Safety Report 5304215-X (Version None)
Quarter: 2007Q2

REPORT INFORMATION
  Report Type: 
  Country: None (occurrence: None)
  Receive Date: 20070423
  Receipt Date: 20070413
  Transmission Date: 20071010
  Serious: Yes (Other)
  Sender: FDA-Public Use
  Company Number: GBWYE468113APR07

PATIENT
  Age: 33 Year
  Sex: Female

DRUGS (3)
  1. VENLAFAXINE HYDROCHLORIDE [Suspect]
     Dosage: 300MG, FREQUENCY UNKNOWN
  2. PAROXETINE [Suspect]
     Dosage: 20MG, FREQUENCY UNKNOWN
  3. PAROXETINE [Suspect]
     Dosage: 30MG, FREQUENCY UNKNOWN

REACTIONS (7)
  - AGITATION [None]
  - ANXIETY [None]
  - CONDITION AGGRAVATED [None]
  - HOMICIDAL IDEATION [None]
  - PHYSICAL ASSAULT [None]
  - SUICIDAL IDEATION [None]
  - SUICIDE ATTEMPT [None]
